FAERS Safety Report 4514485-3 (Version None)
Quarter: 2004Q4

REPORT INFORMATION
  Report Type: 
  Country: None (occurrence: None)
  Receive Date: 20040928
  Receipt Date: 20040716
  Transmission Date: 20050328
  Serious: No
  Sender: FDA-Public Use
  Company Number: 04P-163-0267261-00

PATIENT
  Age: 50 Year
  Sex: Female
  Weight: 115.2136 kg

DRUGS (13)
  1. HUMIRA [Suspect]
     Indication: RHEUMATOID ARTHRITIS
     Dosage: 40 MG, 1 IN 2 WK, SUBCUTANEOUS
     Route: 058
     Dates: start: 20040618, end: 20040715
  2. SERETIDE MITE [Concomitant]
  3. ALBUTEROL [Concomitant]
  4. PROVELLA-14 [Concomitant]
  5. PANTOPRAZOLE [Concomitant]
  6. GABAPENTIN [Concomitant]
  7. AMITRIPTYLINE HCL [Concomitant]
  8. DIAZEPAM [Concomitant]
  9. TOPIRMATE [Concomitant]
  10. SERTRALINE HYDROCHLORIDE [Concomitant]
  11. FENTANYL [Concomitant]
  12. OXYCOCET [Concomitant]
  13. FLUTICASONE PROPIONATE [Concomitant]

REACTIONS (3)
  - ASTHMA [None]
  - UPPER RESPIRATORY TRACT INFECTION [None]
  - VAGINAL MYCOSIS [None]
